FAERS Safety Report 5797937-8 (Version None)
Quarter: 2008Q3

REPORT INFORMATION
  Report Type: 
  Country: None (occurrence: None)
  Receive Date: 20080702
  Receipt Date: 20080618
  Transmission Date: 20090109
  Serious: Yes (Other)
  Sender: FDA-Public Use
  Company Number: US-ELI_LILLY_AND_COMPANY-US200806004385

PATIENT
  Age: 70 Year
  Sex: Female

DRUGS (1)
  1. XIGRIS [Suspect]
     Route: 042
     Dates: start: 20080501, end: 20080501

REACTIONS (2)
  - GASTRIC ULCER [None]
  - GASTROINTESTINAL HAEMORRHAGE [None]
